FAERS Safety Report 6532329-5 (Version None)
Quarter: 2010Q1

REPORT INFORMATION
  Report Type: 
  Country: None (occurrence: None)
  Receive Date: 20100108
  Receipt Date: 20091228
  Transmission Date: 20100710
  Serious: Yes (Other)
  Sender: FDA-Public Use
  Company Number: PL-WATSON-2009-10512

PATIENT
  Age: 17 Year
  Sex: Male

DRUGS (4)
  1. PREDNISONE TAB [Suspect]
     Indication: ACUTE MYELOID LEUKAEMIA
     Dosage: UNK
  2. ASPARAGINASE [Suspect]
     Indication: ACUTE MYELOID LEUKAEMIA
     Dosage: 5000 UG/M2, UNK
  3. DAUNORUBICIN HCL [Concomitant]
     Indication: ACUTE MYELOID LEUKAEMIA
  4. VINCRISTINE [Concomitant]
     Indication: ACUTE MYELOID LEUKAEMIA

REACTIONS (4)
  - CEREBRAL HAEMORRHAGE [None]
  - CEREBRAL ISCHAEMIA [None]
  - CONVULSION [None]
  - HEMIPLEGIA [None]
